FAERS Safety Report 21418685 (Version 1)
Quarter: 2022Q4

REPORT INFORMATION
  Report Type: Spontaneous
  Country: US (occurrence: US)
  Receive Date: 20221006
  Receipt Date: 20221006
  Transmission Date: 20230113
  Serious: No
  Sender: FDA-Public Use
  Company Number: US-ALKERMES INC.-ALK-2022-004687

PATIENT
  Age: 48 Year
  Sex: Female
  Weight: 90.703 kg

DRUGS (2)
  1. VIVITROL [Suspect]
     Active Substance: NALTREXONE
     Indication: Alcoholism
     Dosage: 380 MILLIGRAM, QMO
     Route: 030
     Dates: start: 202209
  2. VITAMINS [Concomitant]
     Active Substance: VITAMINS
     Indication: Product used for unknown indication
     Dosage: UNK

REACTIONS (11)
  - Cough [Unknown]
  - Pain in extremity [Unknown]
  - Joint noise [Unknown]
  - Injection site reaction [Unknown]
  - Injection site mass [Unknown]
  - Injection site pain [Unknown]
  - Injection site induration [Unknown]
  - Fatigue [Unknown]
  - Headache [Unknown]
  - Back pain [Unknown]
  - Dyspnoea [Unknown]

NARRATIVE: CASE EVENT DATE: 20220901
